FAERS Safety Report 8574347-1 (Version None)
Quarter: 2012Q3

REPORT INFORMATION
  Report Type: 
  Country: None (occurrence: None)
  Receive Date: 20120806
  Receipt Date: 20120217
  Transmission Date: 20120928
  Serious: Yes (Other)
  Sender: FDA-Public Use
  Company Number: CHPA2012US014177

PATIENT
  Age: 2 Year
  Sex: Female

DRUGS (1)
  1. TRIAMINIC NIGHT TIME COLD + COUGH [Suspect]
     Indication: NASAL CONGESTION
     Dosage: UNK, UNK
     Route: 048

REACTIONS (2)
  - OVERDOSE [None]
  - CONVULSION [None]
